FAERS Safety Report 7624810-2 (Version None)
Quarter: 2011Q3

REPORT INFORMATION
  Report Type: 
  Country: None (occurrence: None)
  Receive Date: 20110720
  Receipt Date: 20110711
  Transmission Date: 20111222
  Serious: Yes (Other)
  Sender: FDA-Public Use
  Company Number: US-ASTRAZENECA-2011SE41507

PATIENT
  Age: 58 Year
  Sex: Male
  Weight: 113.4 kg

DRUGS (2)
  1. SEROQUEL [Suspect]
     Route: 048
  2. SEROQUEL [Suspect]
     Route: 048
     Dates: start: 20100101

REACTIONS (5)
  - CORONARY ARTERY BYPASS [None]
  - BLOOD GLUCOSE INCREASED [None]
  - DYSPNOEA [None]
  - PLATELET COUNT DECREASED [None]
  - WRONG TECHNIQUE IN DRUG USAGE PROCESS [None]
